FAERS Safety Report 7412920-4 (Version None)
Quarter: 2011Q2

REPORT INFORMATION
  Report Type: 
  Country: None (occurrence: None)
  Receive Date: 20110413
  Receipt Date: 20110411
  Transmission Date: 20111010
  Serious: Yes (Other)
  Sender: FDA-Public Use
  Company Number: US-BAYER-2011-031634

PATIENT
  Sex: Female

DRUGS (2)
  1. YASMIN [Suspect]
     Dosage: UNK
     Dates: start: 20071001, end: 20090301
  2. YAZ [Suspect]
     Dosage: UNK
     Dates: start: 20071001, end: 20090301

REACTIONS (1)
  - THROMBOSIS [None]
